FAERS Safety Report 12692643 (Version 1)
Quarter: 2016Q3

REPORT INFORMATION
  Report Type: Spontaneous
  Country: US (occurrence: None)
  Receive Date: 20160826
  Receipt Date: 20160826
  Transmission Date: 20161109
  Serious: No
  Sender: FDA-Public Use
  Company Number: None

PATIENT
  Age: 67 Year
  Sex: Male
  Weight: 77.11 kg

DRUGS (1)
  1. PROLENSA [Suspect]
     Active Substance: BROMFENAC SODIUM
     Indication: CORNEAL ABRASION
     Dosage: .07% QID OPHTHALMIC??PT HAS HX OF USE WITHOUT PROBLEMS FOR TWO YEARS
     Route: 047

REACTIONS (1)
  - Eye irritation [None]

NARRATIVE: CASE EVENT DATE: 20160315
